FAERS Safety Report 6194473-4 (Version None)
Quarter: 2009Q2

REPORT INFORMATION
  Report Type: 
  Country: None (occurrence: None)
  Receive Date: 20090519
  Receipt Date: 20090508
  Transmission Date: 20091009
  Serious: Yes (Death)
  Sender: FDA-Public Use
  Company Number: GB-JNJFOC-20080802595

PATIENT
  Age: 3 Year
  Sex: Female

DRUGS (2)
  1. ACETAMINOPHEN [Suspect]
     Route: 048
  2. ACETAMINOPHEN [Suspect]
     Indication: DRUG USE FOR UNKNOWN INDICATION
     Dosage: 8.5 GRAMS (ALLEGED MAXIMUM DOSE)
     Route: 048

REACTIONS (2)
  - LIVER INJURY [None]
  - OVERDOSE [None]
